FAERS Safety Report 19017957 (Version 1)
Quarter: 2021Q1

REPORT INFORMATION
  Report Type: Spontaneous
  Country: GB (occurrence: GB)
  Receive Date: 20210317
  Receipt Date: 20210317
  Transmission Date: 20210420
  Serious: Yes (Other)
  Sender: FDA-Public Use
  Company Number: GB-ACCORD-197382

PATIENT
  Age: 76 Year
  Sex: Male
  Weight: 78.01 kg

DRUGS (2)
  1. AMLODIPINE [Suspect]
     Active Substance: AMLODIPINE BESYLATE
     Indication: HYPERTENSION
     Route: 048
     Dates: start: 20200205, end: 20200730
  2. PHENYTOIN. [Concomitant]
     Active Substance: PHENYTOIN
     Indication: ILL-DEFINED DISORDER

REACTIONS (2)
  - Nocturia [Recovered/Resolved]
  - Pollakiuria [Recovered/Resolved]

NARRATIVE: CASE EVENT DATE: 20200206
